FAERS Safety Report 4430536-9 (Version None)
Quarter: 2004Q3

REPORT INFORMATION
  Report Type: 
  Country: None (occurrence: None)
  Receive Date: 20040818
  Receipt Date: 20040810
  Transmission Date: 20050211
  Serious: Yes (Other)
  Sender: FDA-Public Use
  Company Number: 2004227810AU

PATIENT
  Age: 60 Year
  Sex: Female
  Weight: 59 kg

DRUGS (9)
  1. MACRODANTIN [Suspect]
     Indication: URINARY TRACT DISORDER
     Dates: end: 19880330
  2. MOTILIUM [Suspect]
     Dosage: 4 DAILY
  3. ALDACTAZIDE [Suspect]
     Dosage: 1, DAILY
  4. PROTHIADEN [Suspect]
     Dosage: 2.5 MG, DAILY
  5. TEMAZEPAM [Suspect]
     Dosage: 10 MG, DAILY
  6. PIROXICAM [Suspect]
     Dosage: 20 MG, DAILY
  7. SINEQUAN [Suspect]
     Dosage: 20 MG, DAILY
  8. SALBUTAMOL (SALBUTAMOL SULPHATE) SYRUP [Suspect]
     Dosage: 6 UNK, DAILY
  9. BECLOMETHASONE DIPROPIONATE [Suspect]
     Dosage: 4 UNK, DAILY

REACTIONS (8)
  - BLOOD PH DECREASED [None]
  - CARDIOMEGALY [None]
  - DYSPNOEA [None]
  - PCO2 DECREASED [None]
  - PLEURAL FIBROSIS [None]
  - PO2 DECREASED [None]
  - PULMONARY BULLA [None]
  - PULMONARY FIBROSIS [None]
